FAERS Safety Report 11814725 (Version 1)
Quarter: 2015Q4

REPORT INFORMATION
  Report Type: Report from Study
  Country: ES (occurrence: ES)
  Receive Date: 20151209
  Receipt Date: 20151209
  Transmission Date: 20160305
  Serious: Yes (Death)
  Sender: FDA-Public Use
  Company Number: ES-JNJFOC-20151126853

PATIENT
  Age: 74 Year
  Sex: Male

DRUGS (2)
  1. CYCLOPHOSPHAMIDE. [Concomitant]
     Active Substance: CYCLOPHOSPHAMIDE
     Indication: PROSTATE CANCER METASTATIC
     Route: 065
     Dates: start: 201405
  2. ZYTIGA [Suspect]
     Active Substance: ABIRATERONE ACETATE
     Indication: PROSTATE CANCER METASTATIC
     Route: 048
     Dates: start: 201401

REACTIONS (2)
  - Bone marrow disorder [Fatal]
  - Prostate cancer [Fatal]

NARRATIVE: CASE EVENT DATE: 2014
